FAERS Safety Report 15993387 (Version 1)
Quarter: 2019Q1

REPORT INFORMATION
  Report Type: Report from Study
  Country: PK (occurrence: PK)
  Receive Date: 20190222
  Receipt Date: 20190222
  Transmission Date: 20190418
  Serious: Yes (Death)
  Sender: FDA-Public Use
  Company Number: PHHY2019PK039219

PATIENT
  Age: 17 Year
  Sex: Male
  Weight: 53 kg

DRUGS (1)
  1. TASIGNA [Suspect]
     Active Substance: NILOTINIB
     Indication: PRODUCT USED FOR UNKNOWN INDICATION
     Dosage: 800 MG, BID
     Route: 048
     Dates: start: 20180521

REACTIONS (4)
  - Platelet count decreased [Unknown]
  - Death [Fatal]
  - Inappropriate schedule of product administration [Unknown]
  - Haemoglobin decreased [Unknown]

NARRATIVE: CASE EVENT DATE: 20181017
